FAERS Safety Report 7363574-7 (Version None)
Quarter: 2011Q1

REPORT INFORMATION
  Report Type: 
  Country: None (occurrence: None)
  Receive Date: 20110321
  Receipt Date: 20110314
  Transmission Date: 20110831
  Serious: Yes (Death, Life-Threatening, Hospitalization)
  Sender: FDA-Public Use
  Company Number: DE-JNJFOC-20110205737

PATIENT
  Sex: Female
  Weight: 38.37 kg

DRUGS (7)
  1. OLANZAPINE [Concomitant]
     Route: 065
  2. SPIRONOLACTONE [Concomitant]
     Route: 065
  3. RISPERDAL CONSTA [Suspect]
     Route: 030
  4. HEPA MERZ [Concomitant]
     Route: 065
  5. KEPPRA [Concomitant]
     Route: 048
  6. NEXIUM [Concomitant]
     Route: 065
  7. RISPERDAL CONSTA [Suspect]
     Indication: SCHIZOPHRENIA
     Route: 030

REACTIONS (10)
  - INTESTINAL INFARCTION [None]
  - VOMITING [None]
  - ALTERED STATE OF CONSCIOUSNESS [None]
  - GENERAL PHYSICAL HEALTH DETERIORATION [None]
  - ABDOMINAL DISTENSION [None]
  - HOSPITALISATION [None]
  - ABDOMINAL PAIN [None]
  - ANGINA PECTORIS [None]
  - OEDEMA PERIPHERAL [None]
  - DRUG INEFFECTIVE [None]
